FAERS Safety Report 4726627-5 (Version None)
Quarter: 2005Q3

REPORT INFORMATION
  Report Type: 
  Country: None (occurrence: None)
  Receive Date: 20050726
  Receipt Date: 20050714
  Transmission Date: 20060218
  Serious: Yes (Life-Threatening)
  Sender: FDA-Public Use
  Company Number: 05H-062-0299838-00

PATIENT
  Age: 17 Month

DRUGS (1)
  1. HEPARIN SODIUM [Suspect]
     Dosage: CONTINUOUS INFUSION, INTRAVENOUS
     Route: 042

REACTIONS (4)
  - CARDIOGENIC SHOCK [None]
  - GASTROINTESTINAL HAEMORRHAGE [None]
  - HEPARIN-INDUCED THROMBOCYTOPENIA [None]
  - INTRACARDIAC THROMBUS [None]
